FAERS Safety Report 8588611-3 (Version None)
Quarter: 2012Q3

REPORT INFORMATION
  Report Type: 
  Country: None (occurrence: None)
  Receive Date: 20120813
  Receipt Date: 20120801
  Transmission Date: 20120928
  Serious: Yes (Hospitalization)
  Sender: FDA-Public Use
  Company Number: US-BAYER-2012-079001

PATIENT
  Age: 24 Year
  Sex: Female
  Weight: 105 kg

DRUGS (4)
  1. ZOCOR [Concomitant]
  2. NEXIUM [Concomitant]
  3. PLAVIX [Concomitant]
  4. YAZ [Suspect]

REACTIONS (1)
  - CEREBROVASCULAR ACCIDENT [None]
